FAERS Safety Report 16042794 (Version 1)
Quarter: 2019Q2

REPORT INFORMATION
  Report Type: Spontaneous
  Country: US (occurrence: US)
  Receive Date: 20190306
  Receipt Date: 20190306
  Transmission Date: 20190711
  Serious: No
  Sender: FDA-Public Use
  Company Number: None

PATIENT
  Age: 70 Year
  Sex: Male
  Weight: 104.4 kg

DRUGS (2)
  1. JANUMET XR [Suspect]
     Active Substance: METFORMIN HYDROCHLORIDE\SITAGLIPTIN PHOSPHATE
     Indication: DIABETES MELLITUS
     Route: 048
     Dates: start: 20181128, end: 20190305
  2. TERBINAFINE. [Concomitant]
     Active Substance: TERBINAFINE
     Dates: start: 20181018, end: 20181231

REACTIONS (1)
  - Rash [None]

NARRATIVE: CASE EVENT DATE: 20190306
